FAERS Safety Report 5031286-0 (Version None)
Quarter: 2006Q2

REPORT INFORMATION
  Report Type: 
  Country: None (occurrence: None)
  Receive Date: 20060621
  Receipt Date: 20060616
  Transmission Date: 20061013
  Serious: Yes (Hospitalization)
  Sender: FDA-Public Use
  Company Number: FR-AVENTIS-200612185FR

PATIENT
  Sex: Female

DRUGS (2)
  1. TAVANIC [Suspect]
     Indication: SIGMOIDITIS
  2. FLAGYL [Suspect]
     Indication: SIGMOIDITIS

REACTIONS (2)
  - PRURITUS [None]
  - RASH [None]
